FAERS Safety Report 21026892 (Version 1)
Quarter: 2022Q2

REPORT INFORMATION
  Report Type: Spontaneous
  Country: US (occurrence: US)
  Receive Date: 20220630
  Receipt Date: 20220630
  Transmission Date: 20220721
  Serious: Yes (Other)
  Sender: FDA-Public Use
  Company Number: US-AMGEN-USASP2022108453

PATIENT
  Sex: Male

DRUGS (1)
  1. ENBREL [Suspect]
     Active Substance: ETANERCEPT
     Indication: Maternal exposure during pregnancy
     Dosage: UNK
     Route: 064
     Dates: end: 2012

REACTIONS (2)
  - Spinal deformity [Unknown]
  - Premature baby [Unknown]

NARRATIVE: CASE EVENT DATE: 20080101
